FAERS Safety Report 8333340-4 (Version None)
Quarter: 2012Q2

REPORT INFORMATION
  Report Type: 
  Country: None (occurrence: None)
  Receive Date: 20120503
  Receipt Date: 20120427
  Transmission Date: 20120825
  Serious: Yes (Death, Hospitalization, Other)
  Sender: FDA-Public Use
  Company Number: US-PFIZER INC-2010069368

PATIENT
  Sex: Male

DRUGS (1)
  1. CHANTIX [Suspect]
     Indication: SMOKING CESSATION THERAPY
     Dosage: 1 MG, UNK
     Dates: start: 20070723, end: 20091125

REACTIONS (4)
  - COMPLETED SUICIDE [None]
  - ANXIETY DISORDER [None]
  - DEPRESSION [None]
  - INTENTIONAL OVERDOSE [None]
